FAERS Safety Report 8200203-4 (Version None)
Quarter: 2012Q1

REPORT INFORMATION
  Report Type: 
  Country: None (occurrence: None)
  Receive Date: 20120312
  Receipt Date: 20120305
  Transmission Date: 20120608
  Serious: Yes (Other)
  Sender: FDA-Public Use
  Company Number: NL-PFIZER INC-2012058152

PATIENT
  Age: 53 Year
  Sex: Female

DRUGS (1)
  1. SOLU-MEDROL [Suspect]
     Indication: MULTIPLE SCLEROSIS RELAPSE
     Dosage: 1000 MG, 1X/DAY
     Route: 042
     Dates: start: 20120227, end: 20120229

REACTIONS (2)
  - ERYSIPELAS [None]
  - INJECTION SITE ERYTHEMA [None]
